FAERS Safety Report 9713072 (Version 1)
Quarter: 2013Q4

REPORT INFORMATION
  Report Type: Spontaneous
  Country: US (occurrence: US)
  Receive Date: 20131126
  Receipt Date: 20131126
  Transmission Date: 20140711
  Serious: No
  Sender: FDA-Public Use
  Company Number: US-BRISTOL-MYERS SQUIBB COMPANY-19406628

PATIENT
  Age: 77 Year
  Sex: Female
  Weight: 107.03 kg

DRUGS (4)
  1. BYDUREON [Suspect]
     Indication: TYPE 2 DIABETES MELLITUS
     Dosage: PRESCRIPTION #: 0784112
     Dates: start: 20130812
  2. GLIPIZIDE [Suspect]
     Dosage: TAB
     Route: 048
  3. HUMALOG [Suspect]
     Route: 058
  4. LEVEMIR [Suspect]
     Route: 058

REACTIONS (4)
  - Diarrhoea [Recovering/Resolving]
  - Dizziness [Recovering/Resolving]
  - Blood glucose fluctuation [Recovering/Resolving]
  - Injection site haemorrhage [Recovered/Resolved]
